FAERS Safety Report 6370002-7 (Version None)
Quarter: 2009Q3

REPORT INFORMATION
  Report Type: 
  Country: None (occurrence: None)
  Receive Date: 20090923
  Receipt Date: 20070802
  Transmission Date: 20100115
  Serious: Yes (Other)
  Sender: FDA-Public Use
  Company Number: US-ASTRAZENECA-2006UW09039

PATIENT
  Age: 41 Year
  Sex: Male
  Weight: 130.6 kg

DRUGS (9)
  1. SEROQUEL [Suspect]
     Indication: INSOMNIA
     Route: 048
     Dates: start: 20040101
  2. SEROQUEL [Suspect]
     Indication: ANXIETY
     Route: 048
     Dates: start: 20040101
  3. SEROQUEL [Suspect]
     Route: 048
     Dates: start: 20041018
  4. SEROQUEL [Suspect]
     Route: 048
     Dates: start: 20041018
  5. RISPERDAL [Suspect]
     Indication: DELUSIONAL DISORDER, UNSPECIFIED TYPE
     Dates: start: 20030101
  6. RISPERDAL [Suspect]
     Dosage: 0.5 MG - 4 MG
     Dates: start: 20031212
  7. ZYPREXA [Suspect]
     Dates: start: 20010101, end: 20020101
  8. ZYPREXA [Suspect]
     Dosage: 10 MG - 20 MG
     Dates: start: 20030517
  9. ORPHENADRINE CITRATE [Concomitant]
     Dates: start: 20040727

REACTIONS (2)
  - DIABETES MELLITUS [None]
  - TYPE 2 DIABETES MELLITUS [None]
